FAERS Safety Report 10997020 (Version 4)
Quarter: 2017Q2

REPORT INFORMATION
  Report Type: Spontaneous
  Country: US (occurrence: US)
  Receive Date: 20150408
  Receipt Date: 20170518
  Transmission Date: 20170829
  Serious: Yes (Other)
  Sender: FDA-Public Use
  Company Number: US-BRISTOL-MYERS SQUIBB COMPANY-BMS-2014-007756

PATIENT

DRUGS (2)
  1. ABILIFY [Suspect]
     Active Substance: ARIPIPRAZOLE
     Indication: AFFECTIVE DISORDER
     Dosage: 10 MG, UNK
     Route: 065
     Dates: start: 200404, end: 2014
  2. ABILIFY [Suspect]
     Active Substance: ARIPIPRAZOLE
     Indication: COGNITIVE DISORDER
     Route: 065

REACTIONS (15)
  - Obsessive-compulsive disorder [Not Recovered/Not Resolved]
  - Excoriation [Unknown]
  - Impulsive behaviour [Unknown]
  - Gambling disorder [Recovered/Resolved]
  - Psychosexual disorder [Unknown]
  - Suicidal ideation [Unknown]
  - Suicide attempt [Unknown]
  - Injury [Not Recovered/Not Resolved]
  - Theft [Unknown]
  - Shoplifting [Unknown]
  - Emotional distress [Not Recovered/Not Resolved]
  - Mental disorder [Not Recovered/Not Resolved]
  - Brain injury [Unknown]
  - Trichotillomania [Unknown]
  - Product use in unapproved indication [Unknown]
